FAERS Safety Report 16729641 (Version 2)
Quarter: 2019Q3

REPORT INFORMATION
  Report Type: Spontaneous
  Country: US (occurrence: US)
  Receive Date: 20190822
  Receipt Date: 20190827
  Transmission Date: 20191005
  Serious: No
  Sender: FDA-Public Use
  Company Number: US-PFIZER INC-2019358659

PATIENT
  Age: 84 Year
  Sex: Female

DRUGS (5)
  1. SILVER SULFADIAZENE [Suspect]
     Active Substance: SILVER SULFADIAZINE
     Dosage: UNK
  2. CODEINE [Suspect]
     Active Substance: CODEINE
     Dosage: UNK
  3. TIZANIDINE. [Suspect]
     Active Substance: TIZANIDINE
     Dosage: UNK
  4. HYDROCHLOROTHIAZIDE WITH TRIAMTERENE [Suspect]
     Active Substance: HYDROCHLOROTHIAZIDE\TRIAMTERENE
     Dosage: UNK
  5. OXYCODONE [Suspect]
     Active Substance: OXYCODONE
     Dosage: UNK

REACTIONS (4)
  - Oedema peripheral [Unknown]
  - Dyspepsia [Unknown]
  - Muscle spasms [Unknown]
  - Drug hypersensitivity [Unknown]
